FAERS Safety Report 7714526-6 (Version None)
Quarter: 2011Q3

REPORT INFORMATION
  Report Type: 
  Country: None (occurrence: None)
  Receive Date: 20110829
  Receipt Date: 20110820
  Transmission Date: 20111222
  Serious: Yes (Other)
  Sender: FDA-Public Use
  Company Number: US-JNJFOC-20110604966

PATIENT
  Sex: Female
  Weight: 56.7 kg

DRUGS (10)
  1. SYNTHROID [Concomitant]
     Route: 065
  2. DILAUDID [Concomitant]
     Indication: PAIN
     Route: 065
  3. DURAGESIC-100 [Suspect]
     Indication: PRODUCT USED FOR UNKNOWN INDICATION
     Route: 062
  4. KLONOPIN [Concomitant]
     Route: 065
  5. DARVOCET [Concomitant]
     Route: 065
  6. AMBIEN [Concomitant]
     Route: 065
  7. DURAGESIC-100 [Suspect]
     Route: 062
     Dates: end: 20110101
  8. DURAGESIC-100 [Suspect]
     Route: 062
     Dates: start: 20110101
  9. DURAGESIC-100 [Suspect]
     Indication: PAIN
     Route: 062
     Dates: start: 20030101
  10. NORVASC [Concomitant]
     Dosage: 2.5
     Route: 065

REACTIONS (5)
  - PRODUCT ADHESION ISSUE [None]
  - WRONG TECHNIQUE IN DRUG USAGE PROCESS [None]
  - FALL [None]
  - INTERVERTEBRAL DISC DEGENERATION [None]
  - HEAD INJURY [None]
